FAERS Safety Report 8849952 (Version 1)
Quarter: 2012Q4

REPORT INFORMATION
  Report Type: 
  Country: GB (occurrence: GB)
  Receive Date: 20121019
  Receipt Date: 20121019
  Transmission Date: 20130627
  Serious: Yes (Hospitalization)
  Sender: FDA-Public Use
  Company Number: GB-JNJFOC-20121007691

PATIENT
  Age: 81 Year
  Sex: Female
  Weight: 65.5 kg

DRUGS (10)
  1. IBUPROFEN [Suspect]
     Indication: PAIN
     Dosage: 400mg, 3 times a day, taken as required
     Route: 048
     Dates: start: 20120801, end: 20120804
  2. AMLODIPINE [Concomitant]
  3. ASPIRIN [Concomitant]
  4. ATENOLOL [Concomitant]
  5. GLIMEPIRIDE [Concomitant]
  6. PARACETAMOL [Concomitant]
     Route: 065
  7. PERINDOPRIL [Concomitant]
     Dates: start: 20120727
  8. SALBUTAMOL [Concomitant]
  9. SIMVASTATIN [Concomitant]
     Route: 065
  10. ZOPICLONE [Concomitant]

REACTIONS (5)
  - Tubulointerstitial nephritis [Recovering/Resolving]
  - Blood creatinine increased [Recovering/Resolving]
  - Renal impairment [Unknown]
  - Nausea [Unknown]
  - Haemodialysis [None]
